FAERS Safety Report 9630836 (Version 2)
Quarter: 2014Q1

REPORT INFORMATION
  Report Type: Spontaneous
  Country: GB (occurrence: None)
  Receive Date: 20131011
  Receipt Date: 20140131
  Transmission Date: 20141002
  Serious: Yes (Disabling, Other)
  Sender: FDA-Public Use
  Company Number: AUR-APL-2013-08169

PATIENT
  Sex: Female
  Weight: 51.5 kg

DRUGS (2)
  1. SERTRALINE (SERTRALINE) [Suspect]
     Indication: DEPRESSION
     Route: 048
     Dates: start: 20130828, end: 20130903
  2. PROPRANOLOL (PROPRANOLOL) [Concomitant]

REACTIONS (8)
  - Arthralgia [None]
  - Ocular hyperaemia [None]
  - Chromaturia [None]
  - Hypersensitivity [None]
  - Gamma-glutamyltransferase increased [None]
  - Blood thyroid stimulating hormone increased [None]
  - Prothrombin time prolonged [None]
  - Activated partial thromboplastin time prolonged [None]
